FAERS Safety Report 11116389 (Version 1)
Quarter: 2015Q2

REPORT INFORMATION
  Report Type: Spontaneous
  Country: US (occurrence: None)
  Receive Date: 20150514
  Receipt Date: 20150514
  Transmission Date: 20150821
  Serious: No
  Sender: FDA-Public Use
  Company Number: None

PATIENT
  Age: 46 Year
  Sex: Male
  Weight: 350 kg

DRUGS (26)
  1. ATENOLOL (TENORMIN) [Concomitant]
  2. CARBAMIDE PEROXIDE (DEBROX) [Concomitant]
  3. DIAZEPAM (VALIUM) [Concomitant]
  4. MULTIVITAMIN (DAILY-VITE) [Concomitant]
  5. OXYCODONE-ACETAMINOPHEN (PERCOCET) [Concomitant]
  6. ZIPRASIDONE (GEODON) [Concomitant]
  7. ZOLPIDEM [Concomitant]
     Active Substance: ZOLPIDEM\ZOLPIDEM TARTRATE
  8. CENTRUM MULTIVITAMIN +MULTIMINERAL SUPPLEMENT [Concomitant]
  9. LAMOTRIGINE (LAMICTAL) [Concomitant]
  10. REMERON [Concomitant]
     Active Substance: MIRTAZAPINE
  11. QUETIAPINE FUMARATE. [Suspect]
     Active Substance: QUETIAPINE FUMARATE
     Indication: AFFECTIVE DISORDER
     Dosage: 400 MG, 90, 1 TAB 3X DAILY, ORALLY
     Route: 048
     Dates: start: 2010, end: 20150215
  12. QUETIAPINE FUMARATE. [Suspect]
     Active Substance: QUETIAPINE FUMARATE
     Indication: SCHIZOAFFECTIVE DISORDER
     Dosage: 400 MG, 90, 1 TAB 3X DAILY, ORALLY
     Route: 048
     Dates: start: 2010, end: 20150215
  13. METHOCARBAMOL (ROBAXIN) [Concomitant]
  14. LISINOPRIL. [Concomitant]
     Active Substance: LISINOPRIL
  15. LITHIUM CARBONATE (ESKALITH IR) [Concomitant]
  16. POLETHYLENE GLYCOL (MIRALAX) [Concomitant]
  17. QUETIAPINE EXTENDED RELEASE (SEROQUEL XR) [Concomitant]
  18. TERBINAFINE HCL (LAMISIL) [Concomitant]
  19. TESTOSTERONE CYPIONATE OIL (DEPO-TESTOSTERONE) [Concomitant]
  20. LATUDA [Concomitant]
     Active Substance: LURASIDONE HYDROCHLORIDE
  21. NAPROXEN (NAPROSYN) [Concomitant]
  22. AMLODIPINE (NORVASC) [Concomitant]
  23. LORAZEPAM. [Concomitant]
     Active Substance: LORAZEPAM
  24. ASPIRIN  325 MG [Concomitant]
     Active Substance: ASPIRIN
  25. BUPROPION HCL SUSTAINED RELEASE (WELLBUTRIN SR) [Concomitant]
  26. FISH OIL-OMEGA-3 FATTY ACIDS [Concomitant]

REACTIONS (4)
  - Product odour abnormal [None]
  - Laboratory test abnormal [None]
  - Product quality issue [None]
  - Suspected counterfeit product [None]

NARRATIVE: CASE EVENT DATE: 20150115
